FAERS Safety Report 25123367 (Version 2)
Quarter: 2025Q2

REPORT INFORMATION
  Report Type: Report from Study
  Country: US (occurrence: US)
  Receive Date: 20250326
  Receipt Date: 20250506
  Transmission Date: 20250717
  Serious: Yes (Other)
  Sender: BAYER HEALTHCARE LLC
  Company Number: US-BAYER-2025A037115

PATIENT
  Sex: Female

DRUGS (2)
  1. ALKA-SELTZER PLUS MAXIMUM STRENGTH COLD AND COUGH POWER MAX GELS [Suspect]
     Active Substance: ACETAMINOPHEN\CHLORPHENIRAMINE MALEATE\DEXTROMETHORPHAN HYDROBROMIDE\PHENYLEPHRINE HYDROCHLORIDE
     Indication: Hypersensitivity
     Route: 048
  2. ALKA-SELTZER PLUS MAXIMUM STRENGTH COLD AND COUGH POWER MAX GELS [Suspect]
     Active Substance: ACETAMINOPHEN\CHLORPHENIRAMINE MALEATE\DEXTROMETHORPHAN HYDROBROMIDE\PHENYLEPHRINE HYDROCHLORIDE
     Indication: Nasopharyngitis

REACTIONS (2)
  - Foreign body in throat [Unknown]
  - Panic reaction [Unknown]
